FAERS Safety Report 20090474 (Version 1)
Quarter: 2021Q4

REPORT INFORMATION
  Report Type: Spontaneous
  Country: US (occurrence: US)
  Receive Date: 20211119
  Receipt Date: 20211119
  Transmission Date: 20220303
  Serious: Yes (Hospitalization)
  Sender: FDA-Public Use
  Company Number: US-PARI RESPIRATORY EQUIPMENT, INC.-2021PAR00058

PATIENT
  Age: 49 Year
  Sex: Female

DRUGS (4)
  1. KITABIS PAK [Suspect]
     Active Substance: TOBRAMYCIN
     Indication: Bronchiectasis
     Dosage: 300 MG (5 ML)  VIA NEBULIZER AS DIRECTED, 2X/DAY FOR 28 DAYS, FOLLOWED BY 28 DAYS OFF
     Dates: start: 20210720
  2. CAYSTON [Concomitant]
     Active Substance: AZTREONAM
  3. DOXYCYCLINE HYCLATE [Concomitant]
     Active Substance: DOXYCYCLINE HYCLATE
  4. TOBRAMYCIN [Concomitant]
     Active Substance: TOBRAMYCIN

REACTIONS (3)
  - Hospitalisation [Unknown]
  - Product dose omission issue [Unknown]
  - Off label use [Not Recovered/Not Resolved]

NARRATIVE: CASE EVENT DATE: 20210720
